FAERS Safety Report 4521890-8 (Version None)
Quarter: 2004Q4

REPORT INFORMATION
  Report Type: 
  Country: None (occurrence: None)
  Receive Date: 20041207
  Receipt Date: 20041207
  Transmission Date: 20050328
  Serious: Yes (Other)
  Sender: FDA-Public Use
  Company Number: None

PATIENT
  Sex: Female
  Weight: 81.6475 kg

DRUGS (1)
  1. SYNTEST H.S. [Suspect]
     Indication: HORMONE REPLACEMENT THERAPY
     Dosage: 1 TAB - 1 X DAY ORALLY
     Route: 048
     Dates: start: 20041001, end: 20041107

REACTIONS (5)
  - BREAST SWELLING [None]
  - BREAST TENDERNESS [None]
  - HORMONE LEVEL ABNORMAL [None]
  - OEDEMA [None]
  - PHARMACEUTICAL PRODUCT COMPLAINT [None]
